FAERS Safety Report 15734073 (Version 1)
Quarter: 2018Q4

REPORT INFORMATION
  Report Type: Spontaneous
  Country: US (occurrence: US)
  Receive Date: 20181217
  Receipt Date: 20181217
  Transmission Date: 20190205
  Serious: Yes (Other)
  Sender: FDA-Public Use
  Company Number: None

PATIENT
  Age: 18 Year
  Sex: Female
  Weight: 55 kg

DRUGS (2)
  1. DITORAL [Concomitant]
  2. DOXICICLINA [Suspect]
     Active Substance: DOXYCYCLINE

REACTIONS (4)
  - Urinary tract infection [None]
  - Rash [None]
  - Gastritis [None]
  - Haematuria [None]
